FAERS Safety Report 5671766-8 (Version None)
Quarter: 2008Q2

REPORT INFORMATION
  Report Type: 
  Country: None (occurrence: None)
  Receive Date: 20080227
  Receipt Date: 20070102
  Transmission Date: 20081010
  Serious: Yes (Other)
  Sender: FDA-Public Use
  Company Number: HQWYE776330OCT06

PATIENT
  Age: 56 Year
  Sex: Male

DRUGS (2)
  1. EFFEXOR [Suspect]
     Indication: ANXIETY
     Dosage: ORAL
     Route: 048
     Dates: start: 20060101, end: 20061001
  2. LEXAPRO [Suspect]
     Indication: ANXIETY
     Dosage: 20 MG, 1X PER 1 DAY, ORAL
     Route: 048
     Dates: start: 20060101, end: 20061001

REACTIONS (2)
  - CONVULSION [None]
  - DISORIENTATION [None]
